FAERS Safety Report 17486806 (Version 1)
Quarter: 2020Q1

REPORT INFORMATION
  Report Type: Spontaneous
  Country: US (occurrence: US)
  Receive Date: 20200219
  Receipt Date: 20200219
  Transmission Date: 20200409
  Serious: Yes (Life-Threatening, Hospitalization)
  Sender: FDA-Public Use
  Company Number: None

PATIENT
  Age: 64 Year
  Sex: Male
  Weight: 80.29 kg

DRUGS (1)
  1. PACLITAXEL (PACLITAXEL 6MG/ML INJ, CONC, IV) [Suspect]
     Active Substance: PACLITAXEL
     Indication: SQUAMOUS CELL CARCINOMA OF LUNG
     Route: 042
     Dates: start: 20170829, end: 20171003

REACTIONS (7)
  - Dizziness [None]
  - Apnoea [None]
  - Disorientation [None]
  - Unresponsive to stimuli [None]
  - Anaphylactic reaction [None]
  - Infusion related reaction [None]
  - Cardio-respiratory arrest [None]

NARRATIVE: CASE EVENT DATE: 20170830
